FAERS Safety Report 9341030 (Version 3)
Quarter: 2013Q4

REPORT INFORMATION
  Report Type: Spontaneous
  Country: US (occurrence: US)
  Receive Date: 20130610
  Receipt Date: 20131002
  Transmission Date: 20140711
  Serious: No
  Sender: FDA-Public Use
  Company Number: US-009507513-1306USA001287

PATIENT
  Age: 75 Year
  Sex: Female
  Weight: 48.98 kg

DRUGS (9)
  1. CLARITIN [Suspect]
     Indication: HYPERSENSITIVITY
     Dosage: 10 MG, QD
     Route: 048
     Dates: start: 20130516, end: 20130526
  2. ASPIRIN [Concomitant]
     Indication: PREHYPERTENSION
     Dosage: 81 MG, UNKNOWN
  3. METOPROLOL [Concomitant]
     Indication: PREHYPERTENSION
     Dosage: 25 MG, UNKNOWN
  4. SIMVASTATIN [Concomitant]
     Indication: PREHYPERTENSION
     Dosage: 10 MG, UNKNOWN
  5. AMLODIPINE [Concomitant]
     Indication: PREHYPERTENSION
     Dosage: 25 MG, UNKNOWN
  6. METFORMIN [Concomitant]
     Indication: GLUCOSE TOLERANCE IMPAIRED
     Dosage: 500 MG, QD
  7. GABAPENTIN [Concomitant]
     Indication: NEUROPATHY PERIPHERAL
     Dosage: 100 MG, TID
  8. OMEPRAZOLE [Concomitant]
     Indication: GASTRIC DISORDER
     Dosage: 40 MG, QD
  9. ALPRAZOLAM [Concomitant]
     Indication: PRODUCT USED FOR UNKNOWN INDICATION
     Dosage: 0.25 MG, PRN

REACTIONS (4)
  - Somnolence [Not Recovered/Not Resolved]
  - Sneezing [Not Recovered/Not Resolved]
  - Throat irritation [Not Recovered/Not Resolved]
  - Drug ineffective [Unknown]
